FAERS Safety Report 23859777 (Version 4)
Quarter: 2024Q2

REPORT INFORMATION
  Report Type: Report from Study
  Country: CA (occurrence: CA)
  Receive Date: 20240515
  Receipt Date: 20240621
  Transmission Date: 20240715
  Serious: Yes (Other)
  Sender: FDA-Public Use
  Company Number: CA-BAUSCH-BL-2024-005871

PATIENT
  Age: 61 Year
  Sex: Female
  Weight: 102.04 kg

DRUGS (14)
  1. CONTRAVE [Suspect]
     Active Substance: BUPROPION HYDROCHLORIDE\NALTREXONE HYDROCHLORIDE
     Indication: Weight control
     Dosage: 90/8 MG (1 DOSAGE FORMS,1 IN 1 D)
     Route: 048
     Dates: start: 20240220, end: 20240226
  2. CONTRAVE [Suspect]
     Active Substance: BUPROPION HYDROCHLORIDE\NALTREXONE HYDROCHLORIDE
     Dosage: 90/8 MG, 2 TABLETS/DAY
     Route: 048
     Dates: start: 20240227, end: 20240304
  3. CONTRAVE [Suspect]
     Active Substance: BUPROPION HYDROCHLORIDE\NALTREXONE HYDROCHLORIDE
     Dosage: 90/8 MG, 3 TABLETS/DAY
     Route: 048
     Dates: start: 20240305, end: 20240311
  4. CONTRAVE [Suspect]
     Active Substance: BUPROPION HYDROCHLORIDE\NALTREXONE HYDROCHLORIDE
     Dosage: 90/8 MG, 4 TABLETS/DAY (2 DOSAGE FORMS,1 IN 12 HR)
     Route: 048
     Dates: start: 20240312, end: 202403
  5. CONTRAVE [Suspect]
     Active Substance: BUPROPION HYDROCHLORIDE\NALTREXONE HYDROCHLORIDE
     Dosage: 90/8 MG, STAYED AT 2 TABLETS IN THE MORNING AND 1 IN THE EVENING FOR ONE MORE WEEK. (1 IN 12 HR)
     Route: 048
     Dates: start: 202403, end: 20240401
  6. CONTRAVE [Suspect]
     Active Substance: BUPROPION HYDROCHLORIDE\NALTREXONE HYDROCHLORIDE
     Dosage: 90/8 MG (2 DOSAGE FORMS,1 IN 12 HR)
     Route: 048
     Dates: start: 20240402
  7. MEDROXYPROGESTERONE ACETATE [Concomitant]
     Active Substance: MEDROXYPROGESTERONE ACETATE
     Indication: Hormone therapy
     Dosage: 5 MG,1 IN 1 EVENING
  8. CHOLECALCIFEROL [Concomitant]
     Active Substance: CHOLECALCIFEROL
     Indication: Vitamin supplementation
     Dosage: 10000 IU,1 IN 1 WK
  9. ESTRADIOL [Concomitant]
     Active Substance: ESTRADIOL
     Indication: Hormone therapy
     Dosage: 2 MG,1 IN 1 EVENING
  10. Pmsc celecoxib [Concomitant]
     Indication: Inflammation
     Dosage: 200 MG,1 IN 1 AS REQUIRED
  11. Pmsc celecoxib [Concomitant]
     Indication: Pain
  12. RIVA ROSUVASTATIN [Concomitant]
     Indication: Blood cholesterol
     Dosage: 1/2 TABLET IN THE EVENING (5 MG,1 IN 1 EVENING)
  13. RIVA ROSUVASTATIN [Concomitant]
     Indication: Pain
  14. Aventy [Concomitant]
     Indication: Product used for unknown indication
     Dosage: 3 DOSAGE FORMS

REACTIONS (6)
  - Hallucination, auditory [Not Recovered/Not Resolved]
  - Fine motor skill dysfunction [Recovering/Resolving]
  - Dry throat [Recovering/Resolving]
  - Palpitations [Recovered/Resolved]
  - Tremor [Recovering/Resolving]
  - Tinnitus [Not Recovered/Not Resolved]

NARRATIVE: CASE EVENT DATE: 20240220
